FAERS Safety Report 11771528 (Version 1)
Quarter: 2015Q4

REPORT INFORMATION
  Report Type: Spontaneous
  Country: JP (occurrence: JP)
  Receive Date: 20151124
  Receipt Date: 20151124
  Transmission Date: 20160304
  Serious: Yes (Hospitalization, Other)
  Sender: FDA-Public Use
  Company Number: JP-ROCHE-1655591

PATIENT
  Age: 79 Year
  Sex: Male
  Weight: 54 kg

DRUGS (4)
  1. 5-FU [Concomitant]
     Active Substance: FLUOROURACIL
     Indication: RECTAL CANCER
     Dosage: COMPLETED TREATMENT CYCLE NUMBER: 32
     Route: 040
     Dates: start: 20140520, end: 20150908
  2. LEVOFOLINATE [Concomitant]
     Active Substance: LEVOLEUCOVORIN CALCIUM
     Indication: RECTAL CANCER
     Dosage: COMPLETED TREATMENT CYCLE NUMBER: 32
     Route: 041
     Dates: start: 20140520, end: 20150908
  3. AVASTIN [Suspect]
     Active Substance: BEVACIZUMAB
     Indication: RECTAL CANCER
     Route: 041
     Dates: start: 20151028, end: 20151028
  4. AVASTIN [Suspect]
     Active Substance: BEVACIZUMAB
     Indication: COLON CANCER
     Dosage: TREATMENT LINE: 1?COMPLETED TREATMENT CYCLE NUMBER: 32
     Route: 041
     Dates: start: 20140520, end: 20151013

REACTIONS (2)
  - Extravasation of urine [Unknown]
  - Urinary tract disorder [Unknown]

NARRATIVE: CASE EVENT DATE: 20151008
